FAERS Safety Report 9161507 (Version 1)
Quarter: 2013Q1

REPORT INFORMATION
  Report Type: Spontaneous
  Country: US (occurrence: US)
  Receive Date: 20130313
  Receipt Date: 20130313
  Transmission Date: 20140127
  Serious: No
  Sender: FDA-Public Use
  Company Number: US-B.I. PHARMACEUTICALS,INC./RIDGEFIELD-2013-BI-06482BP

PATIENT
  Sex: Female
  Weight: 86 kg

DRUGS (3)
  1. SPIRIVA [Suspect]
     Indication: ASTHMA
     Dosage: 18 MCG
     Route: 055
     Dates: start: 2011, end: 201212
  2. ALBUTEROL [Concomitant]
     Indication: THROAT TIGHTNESS
     Dosage: 7.5 MG
     Route: 055
     Dates: start: 2008
  3. ALBUTEROL [Concomitant]
     Indication: ASTHMA

REACTIONS (3)
  - Eye pain [Recovered/Resolved]
  - Dry eye [Recovered/Resolved]
  - Vision blurred [Recovered/Resolved]
